FAERS Safety Report 17121073 (Version 3)
Quarter: 2020Q1

REPORT INFORMATION
  Report Type: Report from Study
  Country: None (occurrence: CA)
  Receive Date: 20191206
  Receipt Date: 20200217
  Transmission Date: 20200409
  Serious: Yes (Hospitalization)
  Sender: FDA-Public Use
  Company Number: CA-ABBVIE-19P-028-3179393-00

PATIENT
  Age: 17 Year
  Sex: Male
  Weight: 51 kg

DRUGS (7)
  1. HUMIRA [Suspect]
     Active Substance: ADALIMUMAB
     Dosage: DOSE CHANGE
     Route: 058
     Dates: start: 201810, end: 201810
  2. HUMIRA [Suspect]
     Active Substance: ADALIMUMAB
     Dosage: DOSE CHANGE
     Route: 058
     Dates: start: 201810, end: 201810
  3. HUMIRA [Suspect]
     Active Substance: ADALIMUMAB
     Indication: CROHN^S DISEASE
     Dosage: DOSE CHANGE
     Route: 058
     Dates: start: 20170411, end: 201809
  4. STELARA [Concomitant]
     Active Substance: USTEKINUMAB
     Indication: CROHN^S DISEASE
     Route: 058
     Dates: start: 20190502
  5. HUMIRA [Suspect]
     Active Substance: ADALIMUMAB
     Route: 058
     Dates: start: 201810, end: 20190501
  6. VITAMIN D [Concomitant]
     Active Substance: VITAMIN D NOS
     Indication: SUPPLEMENTATION THERAPY
     Dosage: 2 TO 3 TIMES PER WEEK
     Route: 048
     Dates: start: 201904
  7. PROFERRIN [Concomitant]
     Active Substance: IRON
     Indication: PROPHYLAXIS
     Dosage: 2-3 TIMES PER WEEK
     Route: 048
     Dates: start: 201904

REACTIONS (2)
  - Generalised anxiety disorder [Not Recovered/Not Resolved]
  - Major depression [Not Recovered/Not Resolved]

NARRATIVE: CASE EVENT DATE: 20191021
